FAERS Safety Report 5053096-0 (Version None)
Quarter: 2006Q3

REPORT INFORMATION
  Report Type: 
  Country: None (occurrence: None)
  Receive Date: 20060712
  Receipt Date: 20040405
  Transmission Date: 20061208
  Serious: Yes (Hospitalization)
  Sender: FDA-Public Use
  Company Number: 7747

PATIENT
  Age: 17 Year
  Sex: Male
  Weight: 69 kg

DRUGS (18)
  1. METHOTREXATE [Suspect]
     Indication: BONE SARCOMA
     Dosage: 20 G ONCE IV
     Route: 042
     Dates: start: 20040224, end: 20040224
  2. METHOTREXATE [Suspect]
     Indication: BONE SARCOMA
     Dosage: 20 G ONCE IV
     Route: 042
     Dates: start: 20040331, end: 20040331
  3. SODIUM BICARBONATE [Concomitant]
  4. KYTRIL [Concomitant]
  5. BENADRYL [Concomitant]
  6. DECADRON SRC [Concomitant]
  7. PHENERGAN HCL [Concomitant]
  8. ATIVAN [Concomitant]
  9. ZANTAC [Concomitant]
  10. CALCIUM CARBONATE [Concomitant]
  11. FERRIC GLUCONATE [Concomitant]
  12. COLACE [Concomitant]
  13. LACTOBACILLUS [Concomitant]
  14. DIFFLUCAN [Concomitant]
  15. VIOXX [Concomitant]
  16. PROCRIT [Concomitant]
  17. PENTAMIDINE ISETHIONATE [Concomitant]
  18. LEUCOVORIN CALCIUM [Concomitant]

REACTIONS (2)
  - CHEMICAL BURN OF SKIN [None]
  - DRUG CLEARANCE DECREASED [None]
